FAERS Safety Report 4879517-1 (Version None)
Quarter: 2006Q1

REPORT INFORMATION
  Report Type: 
  Country: None (occurrence: None)
  Receive Date: 20060111
  Receipt Date: 20060103
  Transmission Date: 20060701
  Serious: Yes (Death)
  Sender: FDA-Public Use
  Company Number: 2006-01-0010

PATIENT
  Age: 48 Year
  Sex: Male
  Weight: 60 kg

DRUGS (3)
  1. PEG-INTRON [Suspect]
     Indication: HEPATITIS C
     Dosage: 80 MCG QW SUBCUTANEOUS
     Route: 058
     Dates: start: 20050923, end: 20051128
  2. COPEGUS [Suspect]
     Indication: HEPATITIS C
     Dosage: 800 MG QD ORAL
     Route: 048
     Dates: start: 20050923, end: 20051128
  3. IBUPROFEN TABLETS [Concomitant]

REACTIONS (1)
  - DEATH [None]
